FAERS Safety Report 8601502-4 (Version None)
Quarter: 2012Q3

REPORT INFORMATION
  Report Type: 
  Country: None (occurrence: None)
  Receive Date: 20120817
  Receipt Date: 20111130
  Transmission Date: 20120928
  Serious: No
  Sender: FDA-Public Use
  Company Number: US-BRISTOL-MYERS SQUIBB COMPANY-16156358

PATIENT
  Age: 81 Year
  Sex: Male
  Weight: 99 kg

DRUGS (11)
  1. METFORMIN HCL [Concomitant]
  2. VITAMIN B-12 [Concomitant]
  3. BENAZEPRIL HYDROCHLORIDE [Concomitant]
  4. COQ10 [Concomitant]
  5. VITAMIN D [Concomitant]
  6. TERAZOSIN HYDROCHLORIDE [Concomitant]
  7. MULTI-VITAMIN [Concomitant]
  8. SIMVASTATIN [Concomitant]
  9. HYTRIN [Concomitant]
  10. LOVAZA [Concomitant]
  11. SPRYCEL [Suspect]
     Indication: CHRONIC MYELOID LEUKAEMIA
     Dosage: DOSE DECREASED TO 70MG
     Route: 048
     Dates: start: 20081003

REACTIONS (4)
  - DYSPNOEA [None]
  - MUSCULOSKELETAL DISCOMFORT [None]
  - CHEST DISCOMFORT [None]
  - LIMB DISCOMFORT [None]
